FAERS Safety Report 10075914 (Version 1)
Quarter: 2014Q1

REPORT INFORMATION
  Report Type: Spontaneous
  Country: US (occurrence: None)
  Receive Date: 20140321
  Receipt Date: 20140321
  Transmission Date: 20141002
  Serious: Yes (Death, Disabling, Other)
  Sender: FDA-Public Use
  Company Number: 2012SA003250

PATIENT
  Sex: Female

DRUGS (1)
  1. PLAVIX [Suspect]
     Indication: PRODUCT USED FOR UNKNOWN INDICATION
     Dates: start: 200704, end: 201008

REACTIONS (12)
  - Multiple injuries [None]
  - General physical health deterioration [None]
  - Deformity [None]
  - Pain [None]
  - Mental disorder [None]
  - Anhedonia [None]
  - Activities of daily living impaired [None]
  - Economic problem [None]
  - Psychological trauma [None]
  - Haemorrhagic stroke [None]
  - Product quality issue [None]
  - Social problem [None]
